FAERS Safety Report 8139706-X (Version None)
Quarter: 2012Q1

REPORT INFORMATION
  Report Type: 
  Country: None (occurrence: None)
  Receive Date: 20120215
  Receipt Date: 20120210
  Transmission Date: 20120608
  Serious: Yes (Hospitalization, Other)
  Sender: FDA-Public Use
  Company Number: PHHY2012BR012452

PATIENT
  Sex: Female

DRUGS (1)
  1. DIOVAN HCT [Suspect]
     Dosage: (160/12.5 MG), UNK

REACTIONS (3)
  - INTRACARDIAC THROMBUS [None]
  - INFARCTION [None]
  - HYPERTENSION [None]
